FAERS Safety Report 10486881 (Version 1)
Quarter: 2014Q3

REPORT INFORMATION
  Report Type: Spontaneous
  Country: US (occurrence: None)
  Receive Date: 20140908
  Receipt Date: 20140908
  Transmission Date: 20150326
  Serious: Yes (Other)
  Sender: FDA-Public Use
  Company Number: 413076

PATIENT
  Age: 66 Year
  Sex: Female
  Weight: 101.1 kg

DRUGS (5)
  1. LISINOPRIL. [Concomitant]
     Active Substance: LISINOPRIL
  2. METFORMIN [Concomitant]
     Active Substance: METFORMIN HYDROCHLORIDE
  3. SIMVASTATIN. [Concomitant]
     Active Substance: SIMVASTATIN
  4. NOVOLOG FLEXPEN (INSULIN ASPART) [Concomitant]
  5. VICTOZA [Suspect]
     Active Substance: LIRAGLUTIDE
     Indication: TYPE 2 DIABETES MELLITUS
     Route: 058
     Dates: start: 201402, end: 201402

REACTIONS (2)
  - Pancreatitis chronic [None]
  - Renal failure chronic [None]

NARRATIVE: CASE EVENT DATE: 201403
